FAERS Safety Report 17363129 (Version 1)
Quarter: 2020Q1

REPORT INFORMATION
  Report Type: Spontaneous
  Country: FI (occurrence: FI)
  Receive Date: 20200203
  Receipt Date: 20200203
  Transmission Date: 20200409
  Serious: Yes (Death)
  Sender: FDA-Public Use
  Company Number: FI-NAPPMUNDI-GBR-2020-0074785

PATIENT
  Age: 94 Year
  Sex: Male

DRUGS (1)
  1. OXYCODONE HYDROCHLORIDE. [Suspect]
     Active Substance: OXYCODONE HYDROCHLORIDE
     Indication: NECK PAIN
     Dosage: 50 MG, DAILY (50 MG OF OXYCODONE TWO TIMES (ON 15 MAY AND 16 MAY 2018))
     Route: 065
     Dates: start: 20180515, end: 20180516

REACTIONS (4)
  - Pneumonia [Fatal]
  - Overdose [Fatal]
  - Pneumonia aspiration [Fatal]
  - Respiratory disorder [Fatal]

NARRATIVE: CASE EVENT DATE: 201805
